FAERS Safety Report 5148419-8 (Version None)
Quarter: 2006Q4

REPORT INFORMATION
  Report Type: 
  Country: None (occurrence: None)
  Receive Date: 20061110
  Receipt Date: 20060807
  Transmission Date: 20070319
  Serious: Yes (Hospitalization)
  Sender: FDA-Public Use
  Company Number: DE-ABBOTT-06P-062-0339812-00

PATIENT
  Sex: Female
  Weight: 57 kg

DRUGS (5)
  1. ZEMPLAR [Suspect]
     Indication: HYPERPARATHYROIDISM SECONDARY
     Route: 042
     Dates: start: 20060228, end: 20060424
  2. ZEMPLAR [Suspect]
     Dates: start: 20050425, end: 20060619
  3. ZEMPLAR [Suspect]
     Dates: start: 20060620, end: 20060814
  4. ZEMPLAR [Suspect]
     Dates: start: 20060815
  5. HEPARIN [Concomitant]
     Indication: ANTICOAGULANT THERAPY

REACTIONS (1)
  - SHUNT OCCLUSION [None]
